FAERS Safety Report 13466309 (Version 3)
Quarter: 2018Q4

REPORT INFORMATION
  Report Type: Spontaneous
  Country: JP (occurrence: JP)
  Receive Date: 20170421
  Receipt Date: 20181217
  Transmission Date: 20190204
  Serious: Yes (Other)
  Sender: FDA-Public Use
  Company Number: JP-JNJFOC-20170418617

PATIENT
  Age: 8 Year
  Sex: Female

DRUGS (4)
  1. ZYRTEC [Suspect]
     Active Substance: CETIRIZINE HYDROCHLORIDE
     Indication: DERMATITIS ATOPIC
     Dosage: CHANGED TO AN UNSPECIFIED DOSE AND FREQUENCY
     Route: 048
     Dates: start: 201701, end: 2017
  2. ZYRTEC [Suspect]
     Active Substance: CETIRIZINE HYDROCHLORIDE
     Indication: SEASONAL ALLERGY
     Dosage: CHANGED TO AN UNSPECIFIED DOSE AND FREQUENCY
     Route: 048
     Dates: start: 201701, end: 2017
  3. ZYRTEC [Suspect]
     Active Substance: CETIRIZINE HYDROCHLORIDE
     Indication: SEASONAL ALLERGY
     Dosage: DRY SYRUP 1.25%
     Route: 048
     Dates: start: 201610
  4. ZYRTEC [Suspect]
     Active Substance: CETIRIZINE HYDROCHLORIDE
     Indication: DERMATITIS ATOPIC
     Dosage: DRY SYRUP 1.25%
     Route: 048
     Dates: start: 201610

REACTIONS (1)
  - Alopecia universalis [Recovering/Resolving]

NARRATIVE: CASE EVENT DATE: 201611
